FAERS Safety Report 9224724 (Version 2)
Quarter: 2013Q3

REPORT INFORMATION
  Report Type: Spontaneous
  Country: US (occurrence: US)
  Receive Date: 20130411
  Receipt Date: 20130816
  Transmission Date: 20140515
  Serious: Yes (Hospitalization, Other)
  Sender: FDA-Public Use
  Company Number: US-BRISTOL-MYERS SQUIBB COMPANY-18759340

PATIENT
  Age: 71 Year
  Sex: Female

DRUGS (8)
  1. BYDUREON [Suspect]
     Indication: TYPE 2 DIABETES MELLITUS
     Dosage: THERAPY DURATION 3-4 MONTHS
     Route: 058
  2. METFORMIN HCL [Suspect]
  3. GLYBURIDE + METFORMIN HCL TABS [Suspect]
     Dosage: 1DF = 5-500MG?2WEKS AGO 2TABS
     Route: 048
  4. PLAVIX [Suspect]
  5. ATORVASTATIN [Concomitant]
  6. RAMIPRIL [Concomitant]
  7. MAGNESIUM OXIDE [Concomitant]
  8. METOPROLOL [Concomitant]

REACTIONS (5)
  - Foot operation [Unknown]
  - Gastric haemorrhage [Recovered/Resolved]
  - Haematemesis [Unknown]
  - Foreign body aspiration [Unknown]
  - Blood glucose fluctuation [Unknown]
